FAERS Safety Report 16033274 (Version 1)
Quarter: 2019Q1

REPORT INFORMATION
  Report Type: Spontaneous
  Country: BR (occurrence: BR)
  Receive Date: 20190305
  Receipt Date: 20190305
  Transmission Date: 20190418
  Serious: Yes (Other)
  Sender: FDA-Public Use
  Company Number: BR-GLAXOSMITHKLINE-BR2019GSK035956

PATIENT
  Age: 3 Year
  Sex: Male
  Weight: 14 kg

DRUGS (2)
  1. SINOT (AMOXICILLIN) [Suspect]
     Active Substance: AMOXICILLIN
     Indication: PHARYNGITIS
     Dosage: 5 ML, BID
     Route: 048
     Dates: start: 20190221, end: 20190225
  2. ZINNAT [Suspect]
     Active Substance: CEFUROXIME AXETIL
     Indication: PHARYNGITIS
     Dosage: 2.5 ML, BID
     Route: 048
     Dates: start: 20190225

REACTIONS (2)
  - Drug ineffective [Unknown]
  - Haematochezia [Recovered/Resolved]

NARRATIVE: CASE EVENT DATE: 20190226
